FAERS Safety Report 18580297 (Version 6)
Quarter: 2024Q2

REPORT INFORMATION
  Report Type: Spontaneous
  Country: IT (occurrence: IT)
  Receive Date: 20201204
  Receipt Date: 20240425
  Transmission Date: 20240715
  Serious: Yes (Hospitalization)
  Sender: FDA-Public Use
  Company Number: NVSC2020IT312776

PATIENT
  Age: 53 Year
  Sex: Female
  Weight: 70 kg

DRUGS (26)
  1. DOCETAXEL [Suspect]
     Active Substance: DOCETAXEL\DOCETAXEL ANHYDROUS
     Indication: Breast cancer
     Dosage: 137.25 MG,TIW
     Route: 042
     Dates: start: 20170130, end: 20170719
  2. DOCETAXEL [Suspect]
     Active Substance: DOCETAXEL\DOCETAXEL ANHYDROUS
     Indication: HER2 positive breast cancer
  3. VINORELBINE [Suspect]
     Active Substance: VINORELBINE TARTRATE
     Indication: HER2 positive breast cancer
     Dosage: 48 MG (OTHER)
     Route: 042
     Dates: start: 20190503, end: 20190730
  4. FULVESTRANT [Suspect]
     Active Substance: FULVESTRANT
     Indication: HER2 positive breast cancer
     Dosage: 250 MG (OTHER)
     Route: 042
     Dates: start: 20191104, end: 20201221
  5. TYKERB [Suspect]
     Active Substance: LAPATINIB DITOSYLATE
     Indication: HER2 positive breast cancer
     Dosage: 1250 MG, QD (REPORTED WITH BRAND NAME (TYKERB) AND GENERIC NAME LAPATINIB DITOSYLATE MONOHYDRATE)
     Route: 048
     Dates: start: 20181016, end: 20190410
  6. PALBOCICLIB [Suspect]
     Active Substance: PALBOCICLIB
     Indication: HER2 positive breast cancer
     Dosage: 125 MG (OTHER)
     Route: 048
     Dates: start: 20191104
  7. CAPECITABINE [Suspect]
     Active Substance: CAPECITABINE
     Indication: HER2 positive breast cancer
     Dosage: 3000 MG
     Route: 048
     Dates: start: 20181016
  8. TRASTUZUMAB [Suspect]
     Active Substance: TRASTUZUMAB
     Indication: HER2 positive breast cancer
     Dosage: 560 MG, TIW (MOST RECENT DOSE PRIOR TO THE EVENT: 20/FEB/2017)
     Route: 042
     Dates: start: 20170130, end: 20170130
  9. TRASTUZUMAB [Suspect]
     Active Substance: TRASTUZUMAB
     Dosage: 560 MG, TIW (MOST RECENT DOSE PRIOR TO THE EVENT: 20/FEB/2017)
     Route: 042
     Dates: start: 20170220, end: 20180521
  10. ADO-TRASTUZUMAB EMTANSINE [Suspect]
     Active Substance: ADO-TRASTUZUMAB EMTANSINE
     Indication: HER2 positive breast cancer
     Dosage: 3.6 ?G/KG, TIW
     Route: 042
     Dates: start: 20180613, end: 20181001
  11. ERIBULIN MESYLATE [Suspect]
     Active Substance: ERIBULIN MESYLATE
     Indication: HER2 positive breast cancer
     Dosage: 2.36 MG (OTHER)
     Route: 042
     Dates: start: 20190903, end: 20191023
  12. PERTUZUMAB [Suspect]
     Active Substance: PERTUZUMAB
     Indication: HER2 positive breast cancer
     Dosage: 840 MG, TIW (MOST RECENT DOSE PRIOR TO THE EVENT: 20/FEB/2017)
     Route: 042
     Dates: start: 20170130, end: 20170130
  13. FASLODEX [Suspect]
     Active Substance: FULVESTRANT
     Indication: HER2 positive breast cancer
     Dosage: 250 MG (OTHER)
     Route: 042
     Dates: start: 20191104, end: 20201221
  14. TAXOTERE [Suspect]
     Active Substance: DOCETAXEL
     Indication: HER2 positive breast cancer
     Dosage: 137.25 MG, Q3W
     Route: 042
     Dates: start: 20170130, end: 20170719
  15. PERJETA [Suspect]
     Active Substance: PERTUZUMAB
     Indication: HER2 positive breast cancer
     Dosage: 840 MG, Q3W (MOST RECENT DOSE PRIOR TO THE EVENT: 20/FEB/2017)
     Route: 042
     Dates: start: 20170130, end: 20170130
  16. HERCEPTIN [Suspect]
     Active Substance: TRASTUZUMAB
     Indication: HER2 positive breast cancer
     Dosage: 560 MG, Q3W (MOST RECENT DOSE PRIOR TO THE EVENT: 20/FEB/2017)
     Route: 042
     Dates: start: 20170130, end: 20170130
  17. HERCEPTIN [Suspect]
     Active Substance: TRASTUZUMAB
     Dosage: 560 MG, Q3W (MOST RECENT DOSE PRIOR TO THE EVENT: 20/FEB/2017)
     Route: 042
     Dates: start: 20170220, end: 20180521
  18. KADCYLA [Suspect]
     Active Substance: ADO-TRASTUZUMAB EMTANSINE
     Indication: HER2 positive breast cancer
     Dosage: 3.6 ?G/KG, Q3W
     Route: 042
     Dates: start: 20180613, end: 20181001
  19. XELODA [Suspect]
     Active Substance: CAPECITABINE
     Indication: HER2 positive breast cancer
     Dosage: 3000 MG
     Route: 048
     Dates: start: 20181016
  20. HALAVEN [Suspect]
     Active Substance: ERIBULIN MESYLATE
     Indication: HER2 positive breast cancer
     Dosage: 2.36 MG (OTHER)
     Route: 042
     Dates: start: 20190903, end: 20191023
  21. PANTOPRAZOLE [Concomitant]
     Active Substance: PANTOPRAZOLE
     Indication: Product used for unknown indication
     Dosage: UNK
     Route: 065
     Dates: start: 20181121
  22. ZOLEDRONIC ACID [Concomitant]
     Active Substance: ZOLEDRONIC ACID
     Indication: Product used for unknown indication
     Dosage: UNK (ONGOING = NOT CHECKED)
     Route: 065
     Dates: start: 20191106, end: 20200622
  23. LOSARTAN [Concomitant]
     Active Substance: LOSARTAN
     Indication: Product used for unknown indication
     Dosage: UNK
     Route: 065
  24. CITALOPRAM [Concomitant]
     Active Substance: CITALOPRAM\CITALOPRAM HYDROBROMIDE
     Indication: Product used for unknown indication
     Dosage: UNK
     Route: 065
  25. LEVOTHYROXINE SODIUM [Concomitant]
     Active Substance: LEVOTHYROXINE SODIUM
     Indication: Product used for unknown indication
     Dosage: UNK
     Route: 065
     Dates: start: 20161219
  26. VALSARTAN [Concomitant]
     Active Substance: VALSARTAN
     Indication: Product used for unknown indication
     Dosage: UNK
     Route: 065

REACTIONS (12)
  - Blood creatinine increased [Recovered/Resolved]
  - Blood bilirubin increased [Recovered/Resolved]
  - Hepatic failure [Unknown]
  - Renal failure [Unknown]
  - Fatigue [Recovered/Resolved]
  - Jaundice [Unknown]
  - Vomiting [Unknown]
  - Malaise [Unknown]
  - Somnolence [Unknown]
  - Dizziness [Unknown]
  - Rash [Recovered/Resolved]
  - Rash [Recovered/Resolved]

NARRATIVE: CASE EVENT DATE: 20190109
